FAERS Safety Report 6289987-2 (Version None)
Quarter: 2009Q3

REPORT INFORMATION
  Report Type: 
  Country: None (occurrence: None)
  Receive Date: 20090730
  Receipt Date: 20090122
  Transmission Date: 20100115
  Serious: Yes (Hospitalization)
  Sender: FDA-Public Use
  Company Number: US-BRISTOL-MYERS SQUIBB COMPANY-14372171

PATIENT
  Age: 74 Year
  Sex: Male

DRUGS (5)
  1. COUMADIN [Suspect]
  2. PLAVIX [Suspect]
     Indication: ATRIAL FIBRILLATION
     Dates: start: 20080825
  3. PLAVIX [Suspect]
     Indication: ANGIOPLASTY
     Dates: start: 20080825
  4. PLAVIX [Suspect]
     Indication: CAROTID ENDARTERECTOMY
     Dates: start: 20080825
  5. ASPIRIN [Suspect]

REACTIONS (1)
  - HAEMATURIA [None]
